FAERS Safety Report 10201262 (Version 10)
Quarter: 2015Q2

REPORT INFORMATION
  Report Type: Report from Study
  Country: US (occurrence: US)
  Receive Date: 20140528
  Receipt Date: 20150610
  Transmission Date: 20150821
  Serious: Yes (Hospitalization)
  Sender: FDA-Public Use
  Company Number: US-ROCHE-1358109

PATIENT
  Age: 57 Year
  Sex: Male
  Weight: 91 kg

DRUGS (24)
  1. RITUXIMAB [Suspect]
     Active Substance: RITUXIMAB
     Indication: NON-HODGKIN^S LYMPHOMA
     Dosage: DAILY DOSE : CYCLE 1 DAY 1, CYCLE 2 DAY 2,CYCLE 3}: DAY 1 (CYCLE 28-DAYS) AND DAY 1 OF EACH SUBSEQUE
     Route: 042
     Dates: start: 20140212, end: 20140417
  2. PRILOSEC [Concomitant]
     Active Substance: OMEPRAZOLE MAGNESIUM
     Dosage: 1 IN 1 D
     Route: 065
     Dates: start: 20140307
  3. NEULASTA [Concomitant]
     Active Substance: PEGFILGRASTIM
     Route: 058
     Dates: start: 20140215, end: 20140215
  4. UBIQUINOL [Concomitant]
     Indication: VITAMIN SUPPLEMENTATION
     Dosage: 2 CAP
     Route: 065
     Dates: start: 201312
  5. METOPROLOL TARTRATE. [Concomitant]
     Active Substance: METOPROLOL TARTRATE
     Indication: ARRHYTHMIA
     Route: 065
     Dates: start: 201312
  6. FOSAPREPITANT [Concomitant]
     Active Substance: FOSAPREPITANT
     Route: 065
     Dates: start: 20140314
  7. GDC-0199 (BCL-2 SELECTIVE INHIBITOR) [Suspect]
     Active Substance: VENETOCLAX
     Indication: NON-HODGKIN^S LYMPHOMA
     Dosage: ON DAYS 1-7 OF EACH 28-DAY CYCLE.?CYCLE 1
     Route: 048
     Dates: start: 20140213, end: 20140423
  8. IBUPROFEN. [Concomitant]
     Active Substance: IBUPROFEN
     Indication: MALAISE
     Route: 048
     Dates: start: 20140213, end: 20140214
  9. METANX [Concomitant]
     Active Substance: LEVOMEFOLATE CALCIUM\METHYLCOBALAMIN\PYRIDOXAL PHOSPHATE ANHYDROUS
     Indication: VITAMIN SUPPLEMENTATION
     Route: 065
     Dates: start: 201312, end: 20140228
  10. NEUPOGEN [Concomitant]
     Active Substance: FILGRASTIM
     Route: 058
     Dates: start: 20140410, end: 20140416
  11. BENDAMUSTINE [Suspect]
     Active Substance: BENDAMUSTINE
     Indication: NON-HODGKIN^S LYMPHOMA
     Dosage: DAILY DOSE : CYCLE 1 D2 AND D3, CYCLE 2 D2 AND D3, AND D1 AND D2 OF EACH SUBSEQUENT 28-DAY CYCLE (90
     Route: 042
     Dates: start: 20140213
  12. ALBUTEROL. [Concomitant]
     Active Substance: ALBUTEROL
     Indication: DYSPNOEA
     Dosage: 2 PUFF, 1 IN 4 HR.
     Route: 065
     Dates: start: 20140508
  13. GDC-0199 (BCL-2 SELECTIVE INHIBITOR) [Suspect]
     Active Substance: VENETOCLAX
     Dosage: 7 DAYS PER 28-DAY CYCLE.?CYCLE 2
     Route: 048
     Dates: start: 20140313
  14. ZANTAC [Concomitant]
     Active Substance: RANITIDINE HYDROCHLORIDE
     Route: 065
     Dates: start: 20140213, end: 20140215
  15. LIPITOR [Concomitant]
     Active Substance: ATORVASTATIN CALCIUM
     Indication: HYPERLIPIDAEMIA
     Route: 065
     Dates: start: 201312, end: 20140410
  16. ALLOPURINOL. [Concomitant]
     Active Substance: ALLOPURINOL
     Indication: TUMOUR LYSIS SYNDROME
     Route: 048
     Dates: start: 20140212, end: 20140215
  17. NEULASTA [Concomitant]
     Active Substance: PEGFILGRASTIM
     Route: 058
     Dates: start: 20140419, end: 20140419
  18. DOCUSATE [Concomitant]
     Active Substance: DOCUSATE
     Indication: CONSTIPATION
     Route: 065
     Dates: start: 20140214, end: 20140215
  19. ACETAMINOPHEN. [Concomitant]
     Active Substance: ACETAMINOPHEN
     Route: 065
     Dates: start: 20140214
  20. NORMAL SALINE [Concomitant]
     Active Substance: SODIUM CHLORIDE
     Indication: TUMOUR LYSIS SYNDROME
     Route: 042
     Dates: start: 20140211, end: 20140215
  21. ZOFRAN [Concomitant]
     Active Substance: ONDANSETRON HYDROCHLORIDE
     Indication: NAUSEA
     Route: 065
     Dates: start: 20140214, end: 20140218
  22. ZOFRAN [Concomitant]
     Active Substance: ONDANSETRON HYDROCHLORIDE
     Indication: PROPHYLAXIS OF NAUSEA AND VOMITING
     Dosage: DURING RITUXIN/BENDAMUSTINE INFUSION?1 IN 1 M
     Route: 065
     Dates: start: 20140213
  23. CIPROFLOXACIN. [Concomitant]
     Active Substance: CIPROFLOXACIN
     Indication: PROPHYLAXIS
     Route: 065
     Dates: start: 20140320, end: 20140327
  24. SYMBICORT [Concomitant]
     Active Substance: BUDESONIDE\FORMOTEROL FUMARATE DIHYDRATE
     Dosage: 4 PUFF (2 PUFF, 2 IN 1 D)
     Route: 065
     Dates: start: 201312

REACTIONS (6)
  - Bronchitis [Recovered/Resolved]
  - Pyrexia [Recovered/Resolved]
  - Dyspnoea [Recovered/Resolved]
  - Cough [Recovered/Resolved]
  - Syncope [Recovered/Resolved]
  - Diarrhoea [Recovered/Resolved]

NARRATIVE: CASE EVENT DATE: 20140218
